FAERS Safety Report 8480046-7 (Version None)
Quarter: 2012Q2

REPORT INFORMATION
  Report Type: 
  Country: None (occurrence: None)
  Receive Date: 20120629
  Receipt Date: 20120619
  Transmission Date: 20120825
  Serious: No
  Sender: FDA-Public Use
  Company Number: JP-BAXTER-2012BAX007554

PATIENT
  Sex: Female

DRUGS (2)
  1. DIANEAL PD-2 W/ DEXTROSE 4.25% [Suspect]
     Indication: GLOMERULONEPHRITIS
     Route: 033
  2. EXTRANEAL [Suspect]
     Indication: GLOMERULONEPHRITIS
     Route: 033

REACTIONS (2)
  - ABDOMINAL DISCOMFORT [None]
  - FLUID RETENTION [None]
